FAERS Safety Report 19974030 (Version 2)
Quarter: 2021Q4

REPORT INFORMATION
  Report Type: Spontaneous
  Country: US (occurrence: US)
  Receive Date: 20211020
  Receipt Date: 20211102
  Transmission Date: 20220303
  Serious: Yes (Other)
  Sender: FDA-Public Use
  Company Number: US-PFIZER INC-202100998925

PATIENT
  Age: 62 Year
  Sex: Female

DRUGS (14)
  1. IBRANCE [Suspect]
     Active Substance: PALBOCICLIB
     Indication: Breast cancer female
     Dosage: 125 MG, CYCLIC (125MG TAB QD (DAILY) FOR 21/28 DAY)
     Dates: start: 20210520
  2. IBRANCE [Suspect]
     Active Substance: PALBOCICLIB
     Dosage: 125 MG, CYCLIC (DAILY X 21 DAYS THEN7 DAYS OFF)
     Route: 048
     Dates: start: 202104, end: 202107
  3. ZOMETA [Concomitant]
     Active Substance: ZOLEDRONIC ACID
     Dosage: UNK
  4. ZYRTEC [Concomitant]
     Active Substance: CETIRIZINE HYDROCHLORIDE
     Dosage: 10 MG
  5. ACETAMINOPHEN\HYDROCODONE [Concomitant]
     Active Substance: ACETAMINOPHEN\HYDROCODONE
     Dosage: UNK
  6. GABAPENTIN [Concomitant]
     Active Substance: GABAPENTIN
     Dosage: 100 MG
  7. TRAMADOL HCL [Concomitant]
     Active Substance: TRAMADOL HYDROCHLORIDE
     Dosage: 50 MG
  8. ALEVE [Concomitant]
     Active Substance: NAPROXEN SODIUM
     Dosage: 220 MG
  9. B12 ACTIVE [Concomitant]
     Dosage: 1000 UG
  10. D3 VITAMIIN [Concomitant]
     Dosage: UNK
  11. BUPROPION HYDROCHLORIDE [Concomitant]
     Active Substance: BUPROPION HYDROCHLORIDE
     Dosage: 100 MG
  12. SERTRALINE HYDROCHLORIDE [Concomitant]
     Active Substance: SERTRALINE HYDROCHLORIDE
     Dosage: 100 MG
  13. LISINOPRIL [Concomitant]
     Active Substance: LISINOPRIL
     Dosage: UNK
  14. FULVESTRANT [Concomitant]
     Active Substance: FULVESTRANT
     Dosage: 50 MG/ML (50 MG/5ML SYRINGE)

REACTIONS (12)
  - Cellulitis [Unknown]
  - Fatigue [Not Recovered/Not Resolved]
  - Eye disorder [Unknown]
  - Rash [Unknown]
  - Dermatitis [Unknown]
  - Red blood cell count decreased [Unknown]
  - White blood cell count increased [Recovering/Resolving]
  - Hot flush [Unknown]
  - Dyspnoea exertional [Unknown]
  - Lymphoedema [Unknown]
  - Condition aggravated [Unknown]
  - Product dose omission issue [Unknown]
